FAERS Safety Report 6938508-7 (Version None)
Quarter: 2010Q3

REPORT INFORMATION
  Report Type: 
  Country: None (occurrence: None)
  Receive Date: 20100824
  Receipt Date: 20100817
  Transmission Date: 20110219
  Serious: Yes (Other)
  Sender: FDA-Public Use
  Company Number: CN-ASTRAZENECA-2010SE38490

PATIENT
  Age: 51 Year
  Sex: Male

DRUGS (7)
  1. QUETIAPINE [Suspect]
     Indication: BIPOLAR DISORDER
     Route: 048
  2. QUETIAPINE [Suspect]
     Indication: MANIA
     Route: 048
  3. FOSINOPRIL SODIUM [Concomitant]
     Indication: HYPERTENSION
  4. ASPIRIN [Concomitant]
     Indication: CORONARY ARTERY DISEASE
  5. LORAZEPAM [Concomitant]
     Indication: DEPRESSION
     Dosage: 0.5 MG HORA SOMMI
  6. SERTRALINE HYDROCHLORIDE [Concomitant]
     Indication: DEPRESSION
  7. VALPROIC ACID [Concomitant]
     Indication: MANIA

REACTIONS (1)
  - SICK SINUS SYNDROME [None]
